FAERS Safety Report 24186524 (Version 5)
Quarter: 2024Q3

REPORT INFORMATION
  Report Type: Spontaneous
  Country: US (occurrence: US)
  Receive Date: 20240808
  Receipt Date: 20240912
  Transmission Date: 20241017
  Serious: Yes (Other)
  Sender: JOHNSON AND JOHNSON
  Company Number: US-JNJFOC-20240809851

PATIENT
  Age: 61 Year
  Sex: Female

DRUGS (8)
  1. INVEGA HAFYERA [Suspect]
     Active Substance: PALIPERIDONE PALMITATE
     Indication: Schizoaffective disorder
     Route: 030
     Dates: start: 20240607
  2. INVEGA HAFYERA [Suspect]
     Active Substance: PALIPERIDONE PALMITATE
     Indication: Psychotic disorder
  3. INVEGA HAFYERA [Suspect]
     Active Substance: PALIPERIDONE PALMITATE
     Indication: Bipolar disorder
  4. TRAZODONE [Concomitant]
     Active Substance: TRAZODONE HYDROCHLORIDE
     Dosage: ON FOR MORE THAN 1 YEAR WITHOUT ANY DIAGNOSIS
     Route: 048
  5. ALPRAZOLAM [Concomitant]
     Active Substance: ALPRAZOLAM
     Dosage: ON FOR MORE THAN 1 YEAR WITHOUT ANY DIAGNOSIS
     Route: 048
  6. PRAZOSIN [Concomitant]
     Active Substance: PRAZOSIN\PRAZOSIN HYDROCHLORIDE
     Dosage: ON FOR MORE THAN 1 YEAR WITHOUT ANY DIAGNOSIS
     Route: 048
  7. INVEGA [Concomitant]
     Active Substance: PALIPERIDONE
     Route: 048
  8. TRINTELLIX [Concomitant]
     Active Substance: VORTIOXETINE HYDROBROMIDE
     Dosage: ON FOR MORE THAN 1 YEAR WITHOUT ANY DIAGNOSIS
     Route: 048

REACTIONS (2)
  - Schizoaffective disorder [Recovering/Resolving]
  - Delusion [Recovering/Resolving]

NARRATIVE: CASE EVENT DATE: 20240731
